FAERS Safety Report 6548441-0 (Version None)
Quarter: 2010Q1

REPORT INFORMATION
  Report Type: 
  Country: None (occurrence: None)
  Receive Date: 20100124
  Receipt Date: 20090706
  Transmission Date: 20100710
  Serious: No
  Sender: FDA-Public Use
  Company Number: US-ALLERGAN-0909519US

PATIENT
  Age: 51 Year
  Sex: Female

DRUGS (4)
  1. RESTASIS [Suspect]
     Indication: DRY EYE
     Dosage: 1 GTT, BID
     Route: 047
  2. DOXYCYCLINE [Concomitant]
     Indication: INFECTION
     Route: 048
  3. FLAX SEED OIL [Concomitant]
     Dosage: UNK, QD
  4. OMEGA 3 FISH [Concomitant]
     Dosage: UNK, QD

REACTIONS (1)
  - DRY EYE [None]
